FAERS Safety Report 19376845 (Version 7)
Quarter: 2021Q4

REPORT INFORMATION
  Report Type: Report from Study
  Country: US (occurrence: US)
  Receive Date: 20210604
  Receipt Date: 20211025
  Transmission Date: 20220303
  Serious: Yes (Other)
  Sender: FDA-Public Use
  Company Number: US-NOVARTISPH-NVSC2021US125416

PATIENT
  Sex: Male

DRUGS (3)
  1. ENTRESTO [Suspect]
     Active Substance: SACUBITRIL\VALSARTAN
     Indication: Cardiac failure
     Dosage: 100 MG, QD,  (SACUBITRIL 49/ VALSARTAN 51 MG)
     Route: 048
     Dates: start: 20210530
  2. ENTRESTO [Suspect]
     Active Substance: SACUBITRIL\VALSARTAN
     Dosage: 100 MG, BID,  (SACUBITRIL 49/ VALSARTAN 51 MG)
     Route: 048
     Dates: start: 20210530
  3. FAXIMAC [Concomitant]
     Indication: Product used for unknown indication
     Dosage: UNK
     Route: 065
     Dates: start: 20210928

REACTIONS (4)
  - Diabetes mellitus [Unknown]
  - Blood urea increased [Unknown]
  - Weight decreased [Unknown]
  - Product label issue [Unknown]
